FAERS Safety Report 7498929-3 (Version None)
Quarter: 2011Q2

REPORT INFORMATION
  Report Type: 
  Country: None (occurrence: None)
  Receive Date: 20110524
  Receipt Date: 20110511
  Transmission Date: 20111010
  Serious: Yes (Hospitalization, Other)
  Sender: FDA-Public Use
  Company Number: US-BAYER-201016334NA

PATIENT
  Age: 16 Year
  Sex: Female
  Weight: 68.027 kg

DRUGS (13)
  1. FLUCONAZOLE [Concomitant]
     Indication: PRODUCT USED FOR UNKNOWN INDICATION
     Dosage: DAILY DOSE 150 MG
     Route: 048
     Dates: start: 20070118
  2. LORATADINE [Suspect]
     Indication: PRODUCT USED FOR UNKNOWN INDICATION
     Dosage: DAILY DOSE 10 MG
     Route: 048
     Dates: start: 20061214
  3. CLINDAMYCIN [Concomitant]
     Dosage: 300 MG, UNK
     Route: 048
     Dates: start: 20070118
  4. IBUPROFEN [Concomitant]
     Indication: PAIN
     Dosage: 600 MG, UNK
     Route: 048
     Dates: start: 20070115
  5. GYNAZOLE-1 [Suspect]
     Indication: PRODUCT USED FOR UNKNOWN INDICATION
     Dosage: UNK
     Route: 061
     Dates: start: 20061219
  6. DROSPIRENONE AND ETHINYL ESTRADIOL [Suspect]
     Dosage: UNK
     Route: 048
     Dates: start: 20051001, end: 20060101
  7. FERROUS SULFATE TAB [Concomitant]
     Indication: ANAEMIA
     Dosage: DAILY DOSE 70 MG
  8. YASMIN [Suspect]
     Indication: CONTRACEPTION
     Dosage: UNK
     Route: 048
     Dates: start: 20051001, end: 20060101
  9. HYDROCODONE BITARTRATE AND ACETAMINOPHEN [Concomitant]
     Indication: PAIN
     Dosage: UNK
     Route: 048
     Dates: start: 20070115
  10. YAZ [Suspect]
     Dosage: UNK
     Route: 048
     Dates: start: 20051001, end: 20060101
  11. ZAZOLE [Concomitant]
     Indication: FUNGAL INFECTION
     Dosage: UNK
     Route: 061
     Dates: start: 20070118
  12. OMNICEF [Concomitant]
     Indication: PRODUCT USED FOR UNKNOWN INDICATION
     Dosage: 300 MG, BID
     Route: 048
     Dates: start: 20061122
  13. SULFAMETHOXAZOLE TRIMETHOPRIM [Concomitant]
     Indication: PRODUCT USED FOR UNKNOWN INDICATION
     Dosage: UNK UNK, BID
     Route: 048
     Dates: start: 20061218

REACTIONS (5)
  - DEEP VEIN THROMBOSIS [None]
  - THROMBOSIS [None]
  - ADJUSTMENT DISORDER WITH MIXED ANXIETY AND DEPRESSED MOOD [None]
  - PAIN [None]
  - PAIN IN EXTREMITY [None]
